FAERS Safety Report 13334939 (Version 1)
Quarter: 2017Q1

REPORT INFORMATION
  Report Type: Report from Study
  Country: IT (occurrence: IT)
  Receive Date: 20170314
  Receipt Date: 20170314
  Transmission Date: 20170428
  Serious: Yes (Death, Other)
  Sender: FDA-Public Use
  Company Number: IT-CELGENEUS-ITA-2017030392

PATIENT

DRUGS (5)
  1. CARFILZOMIB [Concomitant]
     Active Substance: CARFILZOMIB
     Indication: PLASMA CELL MYELOMA
     Dosage: 20/36
     Route: 041
  2. MELPHALAN [Concomitant]
     Active Substance: MELPHALAN
     Indication: PLASMA CELL MYELOMA
     Route: 065
  3. DEXAMETHASONE. [Concomitant]
     Active Substance: DEXAMETHASONE
     Indication: PLASMA CELL MYELOMA
     Dosage: 20 MILLIGRAM
     Route: 041
  4. REVLIMID [Suspect]
     Active Substance: LENALIDOMIDE
     Indication: PLASMA CELL MYELOMA
     Dosage: 25 MILLIGRAM
     Route: 048
  5. CYCLOPHOSPHAMIDE. [Concomitant]
     Active Substance: CYCLOPHOSPHAMIDE
     Indication: PLASMA CELL MYELOMA
     Route: 065

REACTIONS (16)
  - Haematotoxicity [Unknown]
  - Embolism [Unknown]
  - Acute kidney injury [Unknown]
  - Pneumonia [Unknown]
  - Infection [Fatal]
  - Alanine aminotransferase increased [Unknown]
  - Neutropenia [Unknown]
  - Atrial fibrillation [Unknown]
  - Myocardial ischaemia [Unknown]
  - Cardiac arrest [Fatal]
  - Gamma-glutamyltransferase increased [Unknown]
  - Pyrexia [Unknown]
  - Rash [Unknown]
  - Hypertension [Unknown]
  - Aspartate aminotransferase increased [Unknown]
  - Gastrointestinal disorder [Unknown]
